FAERS Safety Report 24721245 (Version 2)
Quarter: 2024Q4

REPORT INFORMATION
  Report Type: Spontaneous
  Country: US (occurrence: US)
  Receive Date: 20241211
  Receipt Date: 20241226
  Transmission Date: 20250114
  Serious: Yes (Hospitalization)
  Sender: BLUEPRINT MEDICINES
  Company Number: US-Blueprint Medicines Corporation-5565

PATIENT
  Age: 76 Year
  Sex: Female

DRUGS (1)
  1. AYVAKIT [Suspect]
     Active Substance: AVAPRITINIB
     Indication: Mastocytic leukaemia
     Route: 048
     Dates: start: 20241123

REACTIONS (6)
  - Diarrhoea [Recovered/Resolved]
  - Dehydration [Unknown]
  - Muscle spasms [Unknown]
  - Blood potassium decreased [Unknown]
  - Flatulence [Unknown]
  - Nausea [Unknown]
